APPROVED DRUG PRODUCT: OFLOXACIN
Active Ingredient: OFLOXACIN
Strength: 300MG
Dosage Form/Route: TABLET;ORAL
Application: A076220 | Product #002
Applicant: RANBAXY LABORATORIES LTD
Approved: Sep 2, 2003 | RLD: No | RS: No | Type: DISCN